FAERS Safety Report 17799183 (Version 1)
Quarter: 2020Q2

REPORT INFORMATION
  Report Type: Spontaneous
  Country: US (occurrence: US)
  Receive Date: 20200518
  Receipt Date: 20200518
  Transmission Date: 20200714
  Serious: Yes (Hospitalization)
  Sender: FDA-Public Use
  Company Number: US-JNJFOC-20200505149

PATIENT
  Age: 58 Year
  Sex: Female
  Weight: 62.65 kg

DRUGS (2)
  1. ELMIRON [Suspect]
     Active Substance: PENTOSAN POLYSULFATE SODIUM
     Route: 048
     Dates: start: 2020
  2. ELMIRON [Suspect]
     Active Substance: PENTOSAN POLYSULFATE SODIUM
     Indication: CYSTITIS INTERSTITIAL
     Route: 048
     Dates: start: 2006, end: 202002

REACTIONS (3)
  - Visual impairment [Unknown]
  - Bladder pain [Unknown]
  - Transurethral bladder resection [Unknown]

NARRATIVE: CASE EVENT DATE: 2019
